FAERS Safety Report 7948632-8 (Version None)
Quarter: 2011Q4

REPORT INFORMATION
  Report Type: 
  Country: None (occurrence: None)
  Receive Date: 20111130
  Receipt Date: 20111118
  Transmission Date: 20120403
  Serious: Yes (Other)
  Sender: FDA-Public Use
  Company Number: US-BAYER-2011-094052

PATIENT
  Age: 47 Year
  Sex: Female
  Weight: 54.875 kg

DRUGS (4)
  1. MIRENA [Suspect]
     Indication: MENORRHAGIA
  2. LORATADINE [Concomitant]
     Indication: DEPRESSION
     Dosage: UNK
     Route: 048
  3. WELLBUTRIN XL [Concomitant]
     Indication: DEPRESSION
     Dosage: UNK
     Route: 048
  4. MIRENA [Suspect]
     Indication: CONTRACEPTION
     Dosage: 20 MCG/24HR, CONT
     Route: 015
     Dates: start: 20110912, end: 20110927

REACTIONS (3)
  - PAIN [None]
  - DEVICE DISLOCATION [None]
  - DEVICE DIFFICULT TO USE [None]
